FAERS Safety Report 19408703 (Version 1)
Quarter: 2021Q2

REPORT INFORMATION
  Report Type: Spontaneous
  Country: BR (occurrence: BR)
  Receive Date: 20210613
  Receipt Date: 20210613
  Transmission Date: 20210717
  Serious: Yes (Other)
  Sender: FDA-Public Use
  Company Number: BR-ASTRAZENECA-2021A515052

PATIENT
  Age: 68 Year
  Sex: Male

DRUGS (6)
  1. NAPRIX [Concomitant]
     Active Substance: RAMIPRIL
     Dosage: A TABLET, BY THE MORNING
     Route: 048
  2. FORXIGA [Suspect]
     Active Substance: DAPAGLIFLOZIN
     Indication: DIABETES MELLITUS
     Dosage: A TABLET, BY THE MORNING
     Route: 048
  3. ROSUVASTIN [Suspect]
     Active Substance: ROSUVASTATIN
     Route: 048
  4. NEPRI [Concomitant]
     Dosage: AT NIGHT
     Route: 048
  5. ASTRAZENECA COVID?19 VACCINE [Suspect]
     Active Substance: AZD-1222
     Dosage: ONCE/SINGLE ADMINISTRATION
     Route: 030
     Dates: start: 20210426, end: 20210526
  6. KOMBIGLYZE XR [Suspect]
     Active Substance: METFORMIN HYDROCHLORIDE\SAXAGLIPTIN HYDROCHLORIDE
     Indication: DIABETES MELLITUS
     Dosage: A TABLEY, BY THE MORNING
     Route: 048
     Dates: end: 20210524

REACTIONS (5)
  - Pain [Recovered/Resolved]
  - COVID-19 [Recovering/Resolving]
  - Pyrexia [Recovered/Resolved]
  - Fibrin D dimer increased [Recovered/Resolved]
  - Off label use [Recovered/Resolved]

NARRATIVE: CASE EVENT DATE: 2021
